FAERS Safety Report 5476929-2 (Version None)
Quarter: 2007Q4

REPORT INFORMATION
  Report Type: 
  Country: None (occurrence: None)
  Receive Date: 20071004
  Receipt Date: 20070928
  Transmission Date: 20080405
  Serious: Yes (Other)
  Sender: FDA-Public Use
  Company Number: US-ASTRAZENECA-2007UW22808

PATIENT
  Age: 42 Year
  Sex: Female
  Weight: 55.3 kg

DRUGS (7)
  1. SEROQUEL [Suspect]
     Indication: MENTAL DISORDER
     Route: 048
  2. SEROQUEL [Suspect]
     Route: 048
  3. SEROQUEL [Suspect]
     Route: 048
  4. ZOLOFT [Concomitant]
  5. LORAZEPAM [Concomitant]
  6. TRAZODONE HCL [Concomitant]
  7. LEVOTHYROXINE SODIUM [Concomitant]

REACTIONS (4)
  - DYSARTHRIA [None]
  - HEMIPARESIS [None]
  - LIP DISORDER [None]
  - SPEECH DISORDER [None]
